FAERS Safety Report 8051054-5 (Version None)
Quarter: 2012Q1

REPORT INFORMATION
  Report Type: 
  Country: None (occurrence: None)
  Receive Date: 20120117
  Receipt Date: 20120104
  Transmission Date: 20120608
  Serious: Yes (Other)
  Sender: FDA-Public Use
  Company Number: PHHY2011US26576

PATIENT
  Sex: Male
  Weight: 88.889 kg

DRUGS (3)
  1. OSTEO BI-FLEX [Concomitant]
     Dosage: UNK, QD
     Dates: start: 20100101
  2. MULTI-VITAMINS [Concomitant]
     Dosage: UNK, QD
     Dates: start: 20090101
  3. GILENYA [Suspect]
     Indication: MULTIPLE SCLEROSIS
     Dosage: 0.5 MG, QD
     Route: 048
     Dates: start: 20110329, end: 20110329

REACTIONS (3)
  - LOSS OF CONSCIOUSNESS [None]
  - SINUS BRADYCARDIA [None]
  - FEELING ABNORMAL [None]
